FAERS Safety Report 17805322 (Version 1)
Quarter: 2020Q2

REPORT INFORMATION
  Report Type: Report from Study
  Country: None (occurrence: US)
  Receive Date: 20200519
  Receipt Date: 20200519
  Transmission Date: 20200714
  Serious: Yes (Other)
  Sender: FDA-Public Use
  Company Number: US-ABBVIE-20P-163-3409027-00

PATIENT
  Sex: Male

DRUGS (1)
  1. IMBRUVICA [Suspect]
     Active Substance: IBRUTINIB
     Indication: MANTLE CELL LYMPHOMA
     Route: 048
     Dates: start: 20200404

REACTIONS (4)
  - Mass [Unknown]
  - Pulmonary oedema [Unknown]
  - Malignant melanoma [Unknown]
  - Rash [Unknown]

NARRATIVE: CASE EVENT DATE: 2020
